FAERS Safety Report 4747030-8 (Version None)
Quarter: 2005Q3

REPORT INFORMATION
  Report Type: 
  Country: None (occurrence: None)
  Receive Date: 20050817
  Receipt Date: 20050519
  Transmission Date: 20060218
  Serious: Yes (Death)
  Sender: FDA-Public Use
  Company Number: US-BRISTOL-MYERS SQUIBB COMPANY-12975116

PATIENT
  Age: 80 Year
  Sex: Male
  Weight: 75 kg

DRUGS (5)
  1. GLUCOPHAGE [Suspect]
     Indication: DIABETES MELLITUS NON-INSULIN-DEPENDENT
     Route: 048
     Dates: start: 20030630, end: 20050516
  2. REMINYL [Concomitant]
  3. DILTIAZEM HCL [Concomitant]
     Dosage: DOSE FREQUENCY: ONCE OR TWICE DAILY
  4. FUROSEMIDE [Concomitant]
     Indication: OEDEMA PERIPHERAL
  5. QUININE SULFATE [Concomitant]
     Dosage: DURATION OF THERAPY: 10-15 YEARS

REACTIONS (1)
  - MYOCARDIAL INFARCTION [None]
